FAERS Safety Report 17189329 (Version 2)
Quarter: 2019Q4

REPORT INFORMATION
  Report Type: Spontaneous
  Country: FR (occurrence: FR)
  Receive Date: 20191223
  Receipt Date: 20191231
  Transmission Date: 20200122
  Serious: No
  Sender: FDA-Public Use
  Company Number: FR-BEH-2019110852

PATIENT
  Age: 69 Year
  Sex: Male

DRUGS (1)
  1. RESPREEZA [Suspect]
     Active Substance: .ALPHA.1-PROTEINASE INHIBITOR HUMAN
     Indication: PRODUCT USED FOR UNKNOWN INDICATION
     Dosage: 4000 MILLIGRAM, QW
     Route: 042
     Dates: start: 20191212

REACTIONS (5)
  - Intentional device misuse [Unknown]
  - Medication error [Unknown]
  - Product preparation issue [Unknown]
  - No adverse event [Unknown]
  - Device issue [Unknown]
